FAERS Safety Report 14853282 (Version 2)
Quarter: 2018Q3

REPORT INFORMATION
  Report Type: Spontaneous
  Country: US (occurrence: US)
  Receive Date: 20180507
  Receipt Date: 20180718
  Transmission Date: 20181010
  Serious: Yes (Other)
  Sender: FDA-Public Use
  Company Number: US-BAYER-2018-083664

PATIENT
  Age: 29 Year
  Sex: Female
  Weight: 66.67 kg

DRUGS (1)
  1. MIRENA [Suspect]
     Active Substance: LEVONORGESTREL
     Indication: CONTRACEPTION
     Dosage: 20 MCG/24HR, CONT
     Route: 015
     Dates: start: 20170706, end: 20180427

REACTIONS (4)
  - Arthralgia [Recovered/Resolved]
  - Genital haemorrhage [Recovered/Resolved]
  - Uterine perforation [Recovered/Resolved]
  - Pain [Recovered/Resolved]
